FAERS Safety Report 4605207-6 (Version None)
Quarter: 2005Q1

REPORT INFORMATION
  Report Type: 
  Country: None (occurrence: None)
  Receive Date: 20050310
  Receipt Date: 20050310
  Transmission Date: 20050727
  Serious: Yes (Other)
  Sender: FDA-Public Use
  Company Number: None

PATIENT
  Age: 57 Year
  Sex: Male

DRUGS (1)
  1. ZETIA [Suspect]
     Indication: HYPERLIPIDAEMIA
     Dosage: 10 MG DAILY BY MOUTH
     Route: 048
     Dates: start: 20040801, end: 20041019

REACTIONS (2)
  - ABDOMINAL PAIN [None]
  - DIARRHOEA [None]
